FAERS Safety Report 10203546 (Version 1)
Quarter: 2014Q2

REPORT INFORMATION
  Report Type: Spontaneous
  Country: DE (occurrence: DE)
  Receive Date: 20140529
  Receipt Date: 20140529
  Transmission Date: 20141212
  Serious: Yes (Life-Threatening, Hospitalization, Disabling)
  Sender: FDA-Public Use
  Company Number: DE-MYLANLABS-2014S1011790

PATIENT
  Age: 31 Year
  Sex: Male

DRUGS (2)
  1. METHADONE [Suspect]
     Indication: SUICIDE ATTEMPT
     Dosage: 10 ML
  2. METHADONE [Suspect]
     Indication: OFF LABEL USE
     Dosage: 10 ML

REACTIONS (4)
  - Renal failure acute [Unknown]
  - Acute hepatic failure [Unknown]
  - Erectile dysfunction [Not Recovered/Not Resolved]
  - Suicide attempt [Unknown]
